FAERS Safety Report 20906884 (Version 1)
Quarter: 2022Q2

REPORT INFORMATION
  Report Type: Spontaneous
  Country: US (occurrence: None)
  Receive Date: 20220602
  Receipt Date: 20220602
  Transmission Date: 20220721
  Serious: Yes (Life-Threatening, Hospitalization)
  Sender: FDA-Public Use
  Company Number: None

PATIENT
  Age: 69 Year
  Sex: Male
  Weight: 106 kg

DRUGS (2)
  1. ATORVASTATIN [Suspect]
     Active Substance: ATORVASTATIN
     Indication: Hyperlipidaemia
     Dosage: 80 MG AT BEDTIME PO
     Route: 048
     Dates: start: 20210303, end: 20210527
  2. NIACIN [Suspect]
     Active Substance: NIACIN
     Indication: Hyperlipidaemia
     Dosage: MG  PO
     Route: 048
     Dates: start: 20000728, end: 20210527

REACTIONS (2)
  - Rhabdomyolysis [None]
  - Drug intolerance [None]

NARRATIVE: CASE EVENT DATE: 20210527
